FAERS Safety Report 12543524 (Version 1)
Quarter: 2016Q3

REPORT INFORMATION
  Report Type: Spontaneous
  Country: US (occurrence: None)
  Receive Date: 20160708
  Receipt Date: 20160708
  Transmission Date: 20161109
  Serious: Yes (Hospitalization)
  Sender: FDA-Public Use
  Company Number: None

PATIENT
  Age: 61 Year
  Sex: Female
  Weight: 66.23 kg

DRUGS (1)
  1. SORAFENIB, 200 MG BAYER [Suspect]
     Active Substance: SORAFENIB

REACTIONS (3)
  - Lipase increased [None]
  - Toxicity to various agents [None]
  - Pancreatitis [None]

NARRATIVE: CASE EVENT DATE: 20160707
